FAERS Safety Report 5000851-9 (Version None)
Quarter: 2006Q2

REPORT INFORMATION
  Report Type: 
  Country: None (occurrence: None)
  Receive Date: 20060512
  Receipt Date: 20050112
  Transmission Date: 20061013
  Serious: Yes (Hospitalization, Disabling)
  Sender: FDA-Public Use
  Company Number: US-MERCK-0501USA02346

PATIENT
  Age: 29 Year
  Sex: Male
  Weight: 100 kg

DRUGS (5)
  1. VIOXX [Suspect]
     Indication: INFLAMMATION
     Route: 048
     Dates: start: 20010101, end: 20020101
  2. VIOXX [Suspect]
     Indication: JOINT INJURY
     Route: 048
     Dates: start: 20010101, end: 20020101
  3. TYLENOL (CAPLET) [Concomitant]
     Route: 065
  4. IBUPROFEN [Concomitant]
     Route: 065
  5. ASPIRIN [Concomitant]
     Route: 065

REACTIONS (12)
  - ANGINA PECTORIS [None]
  - ARTHROPATHY [None]
  - CARDIAC DISORDER [None]
  - CONTUSION [None]
  - GASTROOESOPHAGEAL REFLUX DISEASE [None]
  - HAND FRACTURE [None]
  - HYPERTENSION [None]
  - JOINT INSTABILITY [None]
  - LIGAMENT INJURY [None]
  - MYOCARDIAL INFARCTION [None]
  - PALPITATIONS [None]
  - TENDONITIS [None]
